FAERS Safety Report 9530774 (Version 1)
Quarter: 2013Q3

REPORT INFORMATION
  Report Type: Spontaneous
  Country: US (occurrence: None)
  Receive Date: 20130916
  Receipt Date: 20130916
  Transmission Date: 20140515
  Serious: Yes (Disabling, Other)
  Sender: FDA-Public Use
  Company Number: None

PATIENT
  Age: 68 Year
  Sex: Male
  Weight: 88 kg

DRUGS (14)
  1. SIMVASTATIN [Suspect]
     Indication: HYPERLIPIDAEMIA
     Route: 048
  2. AMLODIPINE BESYLATE [Suspect]
     Indication: HYPERTENSION
     Route: 048
  3. ASPIRIN EC [Concomitant]
  4. BENAZEPRIL(LOTENSIN) [Concomitant]
  5. HYDROCHLOROTHIAZIDE(MICROZIDE) [Concomitant]
  6. JANUVIA [Concomitant]
  7. METROFORMIN [Concomitant]
  8. GLUCOPHAGE XR [Concomitant]
  9. PIOGLITAZONE(ACTOS) [Concomitant]
  10. TADAFIL(CIALIS) [Concomitant]
  11. COENZYME Q10 [Suspect]
  12. FLAXSEED OIL [Concomitant]
  13. MULTIVITAMIN [Concomitant]
  14. OMEGA 3 [Concomitant]

REACTIONS (4)
  - Disorientation [None]
  - Malaise [None]
  - Fatigue [None]
  - Amnesia [None]
